FAERS Safety Report 11562140 (Version 1)
Quarter: 2015Q3

REPORT INFORMATION
  Report Type: Report from Study
  Country: BR (occurrence: BR)
  Receive Date: 20150928
  Receipt Date: 20150928
  Transmission Date: 20151125
  Serious: Yes (Death, Other)
  Sender: FDA-Public Use
  Company Number: PHHY2015BR116118

PATIENT
  Age: 93 Year
  Sex: Female
  Weight: 36 kg

DRUGS (3)
  1. DIOVAN [Suspect]
     Active Substance: VALSARTAN
     Dosage: 160 MG (1 TABLET), QD
     Route: 065
  2. DIOVAN [Suspect]
     Active Substance: VALSARTAN
     Dosage: 80 MG (1 TABLET), QD
     Route: 065
  3. DIOVAN [Suspect]
     Active Substance: VALSARTAN
     Indication: HYPERTENSION
     Dosage: 80 MG (1 TABLET), QD
     Route: 065

REACTIONS (5)
  - Fall [Unknown]
  - Pneumonia [Unknown]
  - Blood pressure inadequately controlled [Unknown]
  - Pelvic fracture [Unknown]
  - Death [Fatal]

NARRATIVE: CASE EVENT DATE: 20150825
